FAERS Safety Report 16724735 (Version 1)
Quarter: 2019Q4

REPORT INFORMATION
  Report Type: Spontaneous
  Country: US (occurrence: US)
  Receive Date: 20190820
  Receipt Date: 20190820
  Transmission Date: 20200122
  Serious: Yes (Life-Threatening, Hospitalization, Other)
  Sender: FDA-Public Use
  Company Number: None

PATIENT
  Age: 42 Year
  Sex: Female
  Weight: 72 kg

DRUGS (2)
  1. ESCITALOPRAM OXALATE. [Suspect]
     Active Substance: ESCITALOPRAM OXALATE
     Indication: ANXIETY
     Dosage: ?          QUANTITY:1 TABLET(S);?
     Route: 048
     Dates: start: 20190813, end: 20190819
  2. ESCITALOPRAM OXALATE. [Suspect]
     Active Substance: ESCITALOPRAM OXALATE
     Indication: STRESS
     Dosage: ?          QUANTITY:1 TABLET(S);?
     Route: 048
     Dates: start: 20190813, end: 20190819

REACTIONS (10)
  - Migraine [None]
  - Somnolence [None]
  - Dry mouth [None]
  - Chest discomfort [None]
  - Depression [None]
  - Dyspnoea [None]
  - Hypertension [None]
  - Nausea [None]
  - Seizure [None]
  - Hot flush [None]

NARRATIVE: CASE EVENT DATE: 20190818
